FAERS Safety Report 4578538-6 (Version None)
Quarter: 2005Q1

REPORT INFORMATION
  Report Type: 
  Country: None (occurrence: None)
  Receive Date: 20050209
  Receipt Date: 20050121
  Transmission Date: 20050727
  Serious: Yes (Hospitalization)
  Sender: FDA-Public Use
  Company Number: FR_050105591

PATIENT
  Age: 63 Year
  Sex: Male

DRUGS (8)
  1. GEMZAR [Suspect]
     Indication: LYMPHOMA
     Dates: start: 20041027, end: 20041027
  2. ELOXATIN [Concomitant]
  3. RITUXIMAB [Concomitant]
  4. ONCOVORIN (VINCRISTINE SULFATE) [Concomitant]
  5. CYCLOPHOSPHAMIDE [Concomitant]
  6. DOXORUBICIN [Concomitant]
  7. MABTHERA (RITUXIMAB) [Concomitant]
  8. PREDNISONE [Concomitant]

REACTIONS (3)
  - BRONCHIOLITIS [None]
  - CONDITION AGGRAVATED [None]
  - OBSTRUCTIVE AIRWAYS DISORDER [None]
